FAERS Safety Report 17852699 (Version 1)
Quarter: 2020Q2

REPORT INFORMATION
  Report Type: Spontaneous
  Country: AR (occurrence: AR)
  Receive Date: 20200603
  Receipt Date: 20200603
  Transmission Date: 20200714
  Serious: Yes (Other)
  Sender: FDA-Public Use
  Company Number: AR-AMGEN-ARGSP2020045230

PATIENT
  Age: 59 Year
  Sex: Female

DRUGS (1)
  1. ENBREL [Suspect]
     Active Substance: ETANERCEPT
     Indication: PSORIASIS
     Dosage: 50 MG, WEEKLY
     Route: 065
     Dates: start: 20160930

REACTIONS (5)
  - Chronic hepatitis [Unknown]
  - Liver disorder [Unknown]
  - Decreased immune responsiveness [Unknown]
  - Hepatic cirrhosis [Unknown]
  - Malaise [Unknown]

NARRATIVE: CASE EVENT DATE: 20200311
